FAERS Safety Report 8525836-7 (Version None)
Quarter: 2012Q3

REPORT INFORMATION
  Report Type: 
  Country: None (occurrence: None)
  Receive Date: 20120720
  Receipt Date: 20120709
  Transmission Date: 20120928
  Serious: Yes (Disabling)
  Sender: FDA-Public Use
  Company Number: GB-ELI_LILLY_AND_COMPANY-GB201207002828

PATIENT
  Sex: Male
  Weight: 114 kg

DRUGS (4)
  1. MELOXICAM [Concomitant]
     Dosage: 7.5 MG, QD
  2. BYETTA [Suspect]
     Indication: DIABETES MELLITUS
     Dosage: 10 UG, UNKNOWN
     Route: 058
     Dates: start: 20090210, end: 20120402
  3. GLUCOPHAGE [Concomitant]
     Dosage: 500 MG, BID
  4. OMEPRAZOLE [Concomitant]
     Dosage: 20 MG, QD

REACTIONS (1)
  - PEMPHIGOID [None]
